FAERS Safety Report 20141734 (Version 2)
Quarter: 2021Q4

REPORT INFORMATION
  Report Type: Report from Study
  Country: US (occurrence: US)
  Receive Date: 20211202
  Receipt Date: 20211220
  Transmission Date: 20220303
  Serious: Yes (Life-Threatening, Hospitalization, Other)
  Sender: FDA-Public Use
  Company Number: US-BRISTOL-MYERS SQUIBB COMPANY-BMS-2021-129451

PATIENT
  Age: 42 Year
  Sex: Female
  Weight: 85.5 kg

DRUGS (2)
  1. NIVOLUMAB [Suspect]
     Active Substance: NIVOLUMAB
     Indication: Diffuse large B-cell lymphoma
     Dosage: 240 MILLIGRAM, Q2WK
     Route: 042
     Dates: start: 20211115
  2. IBRUTINIB [Suspect]
     Active Substance: IBRUTINIB
     Indication: Diffuse large B-cell lymphoma
     Dosage: 560 MILLIGRAM, QD X 28 DAYS
     Route: 048
     Dates: start: 20211115, end: 20211126

REACTIONS (3)
  - Sepsis [Unknown]
  - Nausea [Recovered/Resolved]
  - Vomiting [Recovered/Resolved]

NARRATIVE: CASE EVENT DATE: 20211128
